FAERS Safety Report 16387026 (Version 1)
Quarter: 2019Q2

REPORT INFORMATION
  Report Type: Spontaneous
  Country: US (occurrence: US)
  Receive Date: 20190604
  Receipt Date: 20190604
  Transmission Date: 20190711
  Serious: No
  Sender: FDA-Public Use
  Company Number: US-ASTRAZENECA-2019SE72489

PATIENT
  Age: 80 Year
  Sex: Male

DRUGS (5)
  1. BRILINTA [Suspect]
     Active Substance: TICAGRELOR
     Indication: MYOCARDIAL INFARCTION
     Route: 048
  2. REPATHA [Concomitant]
     Active Substance: EVOLOCUMAB
  3. CHOLESTEROL [Concomitant]
     Active Substance: CHOLESTEROL
  4. ATORVASTATIN [Concomitant]
     Active Substance: ATORVASTATIN
  5. BRILINTA [Suspect]
     Active Substance: TICAGRELOR
     Indication: MYOCARDIAL INFARCTION
     Route: 048
     Dates: start: 2017

REACTIONS (4)
  - Fatigue [Unknown]
  - Dizziness [Unknown]
  - Memory impairment [Unknown]
  - Chest pain [Unknown]
